FAERS Safety Report 17373646 (Version 1)
Quarter: 2020Q1

REPORT INFORMATION
  Report Type: Spontaneous
  Country: US (occurrence: US)
  Receive Date: 20200205
  Receipt Date: 20200205
  Transmission Date: 20200409
  Serious: No
  Sender: FDA-Public Use
  Company Number: US-BAYER-2020-019935

PATIENT
  Age: 32 Year
  Sex: Female

DRUGS (1)
  1. KYLEENA [Suspect]
     Active Substance: LEVONORGESTREL
     Indication: CONTRACEPTION
     Dosage: 17.5 ?G, CONT
     Route: 015
     Dates: start: 201809, end: 202001

REACTIONS (4)
  - Alopecia [None]
  - Acne [None]
  - Premenstrual syndrome [None]
  - Abdominal distension [None]

NARRATIVE: CASE EVENT DATE: 202001
